FAERS Safety Report 11702655 (Version 1)
Quarter: 2015Q4

REPORT INFORMATION
  Report Type: Spontaneous
  Country: CH (occurrence: CH)
  Receive Date: 20151105
  Receipt Date: 20151105
  Transmission Date: 20160304
  Serious: Yes (Other)
  Sender: FDA-Public Use
  Company Number: CH-SA-2015SA169964

PATIENT
  Sex: Male
  Weight: 3.08 kg

DRUGS (6)
  1. SANALEPSI N [Suspect]
     Active Substance: DOXYLAMINE SUCCINATE
     Route: 064
  2. PREDNISON [Suspect]
     Active Substance: PREDNISONE
     Route: 064
     Dates: start: 20150719
  3. UVAMIN RETARD [Suspect]
     Active Substance: NITROFURANTOIN
     Route: 064
     Dates: start: 20150719, end: 20150725
  4. CLEXANE [Suspect]
     Active Substance: ENOXAPARIN SODIUM
     Route: 064
     Dates: start: 2015
  5. SOLU-MEDROL [Suspect]
     Active Substance: METHYLPREDNISOLONE SODIUM SUCCINATE
     Route: 064
     Dates: start: 20150721, end: 20150721
  6. NEXIUM [Suspect]
     Active Substance: ESOMEPRAZOLE MAGNESIUM
     Route: 064
     Dates: start: 2014

REACTIONS (4)
  - Conjunctivitis [Recovered/Resolved]
  - Foetal exposure during pregnancy [Unknown]
  - Premature baby [Recovered/Resolved]
  - Cardiac murmur [Unknown]

NARRATIVE: CASE EVENT DATE: 20150812
